FAERS Safety Report 7491867-1 (Version None)
Quarter: 2011Q1

REPORT INFORMATION
  Report Type: 
  Country: None (occurrence: None)
  Receive Date: 20110318
  Receipt Date: 20101018
  Transmission Date: 20110831
  Serious: Yes (Other)
  Sender: FDA-Public Use
  Company Number: 2-1010-86

PATIENT

DRUGS (4)
  1. CRESTOR (CHOLESTEROL) [Concomitant]
  2. TRIAMTERENE AND HYDROCHLOROTHIAZIDE [Concomitant]
  3. DERMA-SMOOTHE/FS [Suspect]
     Indication: ALOPECIA
     Dosage: TOPICAL
     Route: 061
  4. CITRACAL (CALCIUM VITAMIN) [Concomitant]

REACTIONS (3)
  - HEADACHE [None]
  - PRURITUS [None]
  - SKIN DISORDER [None]
